FAERS Safety Report 6156469-8 (Version None)
Quarter: 2009Q2

REPORT INFORMATION
  Report Type: 
  Country: None (occurrence: None)
  Receive Date: 20090416
  Receipt Date: 20090316
  Transmission Date: 20091009
  Serious: No
  Sender: FDA-Public Use
  Company Number: US-BAYER-200840218NA

PATIENT
  Age: 54 Year
  Sex: Female

DRUGS (9)
  1. AVELOX [Suspect]
     Indication: BRONCHITIS
     Dosage: TOTAL DAILY DOSE: 400 MG  UNIT DOSE: 400 MG
     Route: 048
     Dates: start: 20081124, end: 20081124
  2. AVELOX [Suspect]
     Dates: start: 20081012
  3. DIAZIDE [Concomitant]
     Dosage: 325/2.5
  4. ZOLOFT [Concomitant]
  5. XANAX [Concomitant]
  6. LIPITOR [Concomitant]
  7. ALBUTEROL [Concomitant]
  8. ADVAIR HFA [Concomitant]
     Dosage: 250/50
  9. VICODIN [Concomitant]
     Dosage: 5/500

REACTIONS (5)
  - DYSPNOEA [None]
  - FEELING ABNORMAL [None]
  - HYPERHIDROSIS [None]
  - HYPERSENSITIVITY [None]
  - URTICARIA [None]
